APPROVED DRUG PRODUCT: CLOZAPINE
Active Ingredient: CLOZAPINE
Strength: 50MG
Dosage Form/Route: TABLET;ORAL
Application: A075713 | Product #003
Applicant: SUN PHARMACEUTICAL INDUSTRIES INC
Approved: Aug 19, 2005 | RLD: No | RS: No | Type: DISCN